FAERS Safety Report 16461676 (Version 2)
Quarter: 2019Q2

REPORT INFORMATION
  Report Type: Spontaneous
  Country: CA (occurrence: CA)
  Receive Date: 20190621
  Receipt Date: 20190628
  Transmission Date: 20190711
  Serious: Yes (Other)
  Sender: FDA-Public Use
  Company Number: CA-CELLTRION INC.-2019CA019726

PATIENT

DRUGS (13)
  1. INFLECTRA [Suspect]
     Active Substance: INFLIXIMAB-DYYB
     Dosage: 500 MG, Q (EVERY) 0, 2, 6 WEEKS, THEN EVERY 8 WEEKS.
     Route: 042
     Dates: start: 20190220
  2. SYNTHROID [Concomitant]
     Active Substance: LEVOTHYROXINE SODIUM
     Dosage: UNK
     Route: 065
  3. INFLECTRA [Suspect]
     Active Substance: INFLIXIMAB-DYYB
     Dosage: 500 MG, Q (EVERY) 0, 2, 6 WEEKS, THEN EVERY 8 WEEKS.
     Dates: start: 20190226
  4. PREDNISONE. [Concomitant]
     Active Substance: PREDNISONE
     Dosage: UNK
     Route: 065
  5. INFLECTRA [Suspect]
     Active Substance: INFLIXIMAB-DYYB
     Dosage: 500 MG, Q (EVERY) 0, 2, 6 WEEKS, THEN EVERY 8 WEEKS.
     Route: 042
     Dates: start: 20190226
  6. REMICADE [Suspect]
     Active Substance: INFLIXIMAB
     Indication: COLITIS ULCERATIVE
     Dosage: UNK
     Route: 065
  7. INFLECTRA [Suspect]
     Active Substance: INFLIXIMAB-DYYB
     Dosage: 500 MG, Q (EVERY) 0, 2, 6 WEEKS, THEN EVERY 8 WEEKS.
     Dates: start: 20190226
  8. INFLECTRA [Suspect]
     Active Substance: INFLIXIMAB-DYYB
     Dosage: 1000 MG, EVERY 4 WEEKS
     Route: 042
     Dates: start: 20190411
  9. INFLECTRA [Suspect]
     Active Substance: INFLIXIMAB-DYYB
     Dosage: 500 MG, Q (EVERY) 0, 2, 6 WEEKS, THEN EVERY 8 WEEKS
     Dates: start: 20190226
  10. INFLECTRA [Suspect]
     Active Substance: INFLIXIMAB-DYYB
     Indication: COLITIS ULCERATIVE
     Dosage: 500 MG, Q (EVERY) 0, 2, 6 WEEKS, THEN EVERY 8 WEEKS.
     Route: 042
     Dates: start: 20190220
  11. INFLECTRA [Suspect]
     Active Substance: INFLIXIMAB-DYYB
     Dosage: 500 MG, Q (EVERY) 0, 2, 6 WEEKS, THEN EVERY 8 WEEKS.
     Route: 042
     Dates: start: 20190402, end: 20190402
  12. INFLECTRA [Suspect]
     Active Substance: INFLIXIMAB-DYYB
     Dosage: 1000 MG, EVERY 4 WEEKS
     Route: 042
     Dates: start: 20190430, end: 20190430
  13. INFLECTRA [Suspect]
     Active Substance: INFLIXIMAB-DYYB
     Dosage: 1000 MG, EVERY 4 WEEKS
     Route: 042
     Dates: start: 20190527, end: 20190527

REACTIONS (17)
  - Pyrexia [Unknown]
  - Inappropriate schedule of product administration [Unknown]
  - Cough [Not Recovered/Not Resolved]
  - Clostridium difficile infection [Unknown]
  - Nausea [Not Recovered/Not Resolved]
  - Purulence [Unknown]
  - Vomiting [Unknown]
  - Feeling cold [Recovered/Resolved]
  - Heart rate irregular [Recovered/Resolved]
  - Therapy non-responder [Unknown]
  - Cytomegalovirus infection [Unknown]
  - Condition aggravated [Unknown]
  - Dizziness [Recovered/Resolved]
  - Off label use [Unknown]
  - Asthenia [Recovered/Resolved]
  - Liver disorder [Unknown]
  - Treatment failure [Unknown]

NARRATIVE: CASE EVENT DATE: 201902
